FAERS Safety Report 4729911-4 (Version None)
Quarter: 2005Q3

REPORT INFORMATION
  Report Type: 
  Country: None (occurrence: None)
  Receive Date: 20050728
  Receipt Date: 20050728
  Transmission Date: 20060218
  Serious: Yes (Hospitalization)
  Sender: FDA-Public Use
  Company Number: None

PATIENT
  Age: 77 Year
  Sex: Female

DRUGS (7)
  1. LEUKERAN [Suspect]
     Dates: start: 20040705, end: 20040719
  2. HYDROCHLOROTHIAZIDE [Suspect]
  3. ZOFRAN [Concomitant]
  4. CELEBREX [Concomitant]
  5. AMITRIPTYLINE [Concomitant]
  6. GLUCOPHAGE [Concomitant]
  7. TOLBUTAMIDE [Concomitant]

REACTIONS (5)
  - ANAEMIA [None]
  - HYPONATRAEMIA [None]
  - NAUSEA [None]
  - RENAL FAILURE ACUTE [None]
  - VOMITING [None]
